FAERS Safety Report 9171791 (Version 1)
Quarter: 2013Q1

REPORT INFORMATION
  Report Type: Spontaneous
  Country: FR (occurrence: FR)
  Receive Date: 20130319
  Receipt Date: 20130319
  Transmission Date: 20140127
  Serious: Yes (Other)
  Sender: FDA-Public Use
  Company Number: FR-009507513-1303FRA005564

PATIENT
  Sex: Male

DRUGS (2)
  1. NOROXINE [Suspect]
     Dosage: 400 MG, QD
     Route: 048
     Dates: start: 20130124, end: 20130215
  2. AUGMENTIN [Suspect]
     Dosage: 1 G, TID
     Route: 042
     Dates: start: 20130109, end: 20130116

REACTIONS (1)
  - Bone marrow failure [Unknown]
